FAERS Safety Report 7666049-0 (Version None)
Quarter: 2011Q3

REPORT INFORMATION
  Report Type: 
  Country: None (occurrence: None)
  Receive Date: 20110806
  Receipt Date: 20110525
  Transmission Date: 20111222
  Serious: No
  Sender: FDA-Public Use
  Company Number: US-ABBOTT-11P-163-0728451-00

PATIENT
  Sex: Female
  Weight: 79.45 kg

DRUGS (4)
  1. EXFORGE [Concomitant]
     Indication: HYPERTENSION
  2. ASPIRIN [Concomitant]
     Indication: PROPHYLAXIS
  3. NIASPAN [Suspect]
     Indication: BLOOD CHOLESTEROL INCREASED
     Dates: start: 20110401, end: 20110501
  4. COUMADIN [Concomitant]
     Indication: CARDIAC PACEMAKER INSERTION

REACTIONS (1)
  - TACHYCARDIA [None]
